FAERS Safety Report 6749652-1 (Version None)
Quarter: 2010Q2

REPORT INFORMATION
  Report Type: 
  Country: None (occurrence: None)
  Receive Date: 20100601
  Receipt Date: 20100524
  Transmission Date: 20101027
  Serious: Yes (Death)
  Sender: FDA-Public Use
  Company Number: B0654405A

PATIENT
  Sex: Male
  Weight: 50 kg

DRUGS (12)
  1. SERETIDE [Suspect]
     Indication: EMPHYSEMA
     Dosage: 500MCG PER DAY
     Route: 055
     Dates: start: 20091210, end: 20100417
  2. NU-LOTAN [Suspect]
     Dosage: 50MG PER DAY
     Route: 048
  3. TOLEDOMIN [Suspect]
     Dosage: 100MG PER DAY
     Route: 048
  4. ARICEPT [Suspect]
     Dosage: 5MG PER DAY
     Route: 048
  5. GOODMIN [Suspect]
     Dosage: .25MG PER DAY
     Route: 048
  6. MYSLEE [Suspect]
     Dosage: 5MG PER DAY
     Route: 048
  7. SPIRIVA [Concomitant]
     Indication: CHRONIC OBSTRUCTIVE PULMONARY DISEASE
     Dosage: 18MCG PER DAY
     Route: 055
  8. THEO-DUR [Concomitant]
     Indication: CHRONIC OBSTRUCTIVE PULMONARY DISEASE
     Dosage: 400MG PER DAY
     Route: 048
  9. UNKNOWN DRUG [Concomitant]
     Indication: CHRONIC OBSTRUCTIVE PULMONARY DISEASE
     Dosage: 30MG PER DAY
     Route: 048
  10. CLARITIN [Concomitant]
     Indication: CHRONIC OBSTRUCTIVE PULMONARY DISEASE
     Dosage: 10MG PER DAY
     Route: 048
  11. SALUMOSIN [Concomitant]
     Dosage: 10MG PER DAY
     Route: 048
  12. MUCOSTA [Concomitant]
     Dosage: 300MG PER DAY
     Route: 048

REACTIONS (1)
  - STATUS ASTHMATICUS [None]
